FAERS Safety Report 9690172 (Version 2)
Quarter: 2014Q1

REPORT INFORMATION
  Report Type: Spontaneous
  Country: US (occurrence: US)
  Receive Date: 20131115
  Receipt Date: 20140109
  Transmission Date: 20141002
  Serious: Yes (Other)
  Sender: FDA-Public Use
  Company Number: US-JNJFOC-20131107115

PATIENT
  Age: 51 Year
  Sex: Female
  Weight: 100 kg

DRUGS (23)
  1. DOXIL [Suspect]
     Indication: PLASMA CELL MYELOMA
     Dosage: CYCLE 3
     Route: 042
     Dates: start: 20130917
  2. DOXIL [Suspect]
     Indication: PLASMA CELL MYELOMA
     Dosage: CYCLE 2
     Route: 042
     Dates: start: 20130827
  3. DOXIL [Suspect]
     Indication: PLASMA CELL MYELOMA
     Route: 042
     Dates: start: 20130806
  4. DOXIL [Suspect]
     Indication: PLASMA CELL MYELOMA
     Route: 042
     Dates: start: 20131008
  5. VELCADE [Suspect]
     Indication: PLASMA CELL MYELOMA
     Route: 058
     Dates: start: 20130917
  6. VELCADE [Suspect]
     Indication: PLASMA CELL MYELOMA
     Route: 058
     Dates: start: 20130903
  7. VELCADE [Suspect]
     Indication: PLASMA CELL MYELOMA
     Dosage: CYCLE 1 D4
     Route: 058
     Dates: start: 20130830
  8. VELCADE [Suspect]
     Indication: PLASMA CELL MYELOMA
     Dosage: CYCLE 2 DAY 1
     Route: 058
     Dates: start: 20130827
  9. VELCADE [Suspect]
     Indication: PLASMA CELL MYELOMA
     Route: 058
     Dates: start: 20130816
  10. VELCADE [Suspect]
     Indication: PLASMA CELL MYELOMA
     Route: 058
     Dates: start: 20131018
  11. VELCADE [Suspect]
     Indication: PLASMA CELL MYELOMA
     Route: 058
     Dates: start: 20130806
  12. VELCADE [Suspect]
     Indication: PLASMA CELL MYELOMA
     Route: 058
     Dates: start: 20130924
  13. VELCADE [Suspect]
     Indication: PLASMA CELL MYELOMA
     Route: 058
     Dates: start: 20130927
  14. VELCADE [Suspect]
     Indication: PLASMA CELL MYELOMA
     Route: 058
     Dates: start: 20131008
  15. VELCADE [Suspect]
     Indication: PLASMA CELL MYELOMA
     Route: 058
     Dates: start: 20131011
  16. VELCADE [Suspect]
     Indication: PLASMA CELL MYELOMA
     Route: 058
     Dates: start: 20131015
  17. VELCADE [Suspect]
     Indication: PLASMA CELL MYELOMA
     Route: 058
     Dates: start: 20130809
  18. ZOMETA [Suspect]
     Indication: PLASMA CELL MYELOMA
     Route: 042
     Dates: start: 20130806
  19. ZOMETA [Suspect]
     Indication: PLASMA CELL MYELOMA
     Route: 042
     Dates: start: 20130903
  20. DECADRON [Suspect]
     Indication: PLASMA CELL MYELOMA
     Route: 048
     Dates: start: 20130830
  21. DECADRON [Suspect]
     Indication: PLASMA CELL MYELOMA
     Route: 048
     Dates: start: 20130806
  22. DECADRON [Suspect]
     Indication: PLASMA CELL MYELOMA
     Route: 048
     Dates: start: 20130809
  23. DECADRON [Suspect]
     Indication: PLASMA CELL MYELOMA
     Route: 048
     Dates: start: 20130827

REACTIONS (12)
  - Blood glucose increased [Unknown]
  - Asthma [Unknown]
  - Muscular weakness [Unknown]
  - Throat irritation [Unknown]
  - Oral pain [Unknown]
  - Increased upper airway secretion [Unknown]
  - Procedural pain [Unknown]
  - Dry skin [Unknown]
  - Paraesthesia [Unknown]
  - Dysgeusia [Unknown]
  - Skin exfoliation [Unknown]
  - Erythema [Unknown]
